FAERS Safety Report 13485703 (Version 2)
Quarter: 2017Q3

REPORT INFORMATION
  Report Type: Spontaneous
  Country: US (occurrence: US)
  Receive Date: 20170426
  Receipt Date: 20170718
  Transmission Date: 20171127
  Serious: Yes (Death, Hospitalization, Other)
  Sender: FDA-Public Use
  Company Number: US-PFIZER INC-2017175165

PATIENT
  Age: 84 Year
  Sex: Female
  Weight: 72.57 kg

DRUGS (1)
  1. REVATIO [Suspect]
     Active Substance: SILDENAFIL CITRATE
     Indication: PULMONARY HYPERTENSION
     Dosage: 20 MG, 3X/DAY
     Route: 048

REACTIONS (3)
  - Oxygen saturation decreased [Unknown]
  - Renal disorder [Recovered/Resolved]
  - Dyspnoea [Fatal]

NARRATIVE: CASE EVENT DATE: 20170223
